FAERS Safety Report 18446107 (Version 1)
Quarter: 2020Q4

REPORT INFORMATION
  Report Type: Spontaneous
  Country: DE (occurrence: DE)
  Receive Date: 20201030
  Receipt Date: 20201030
  Transmission Date: 20210114
  Serious: Yes (Hospitalization)
  Sender: FDA-Public Use
  Company Number: DE-ANIPHARMA-2020-DE-000251

PATIENT
  Age: 69 Year
  Sex: Female

DRUGS (11)
  1. DICLOFENAC [Concomitant]
     Active Substance: DICLOFENAC
     Dosage: 75 MG PRN
     Route: 065
  2. ASA [Concomitant]
     Active Substance: ASPIRIN
     Dosage: 100 DAILY / 100 TWO TIMES DAILY
     Route: 065
  3. L-THYROXIN [Concomitant]
     Active Substance: LEVOTHYROXINE SODIUM
     Dosage: 50 UG DAILY
     Route: 065
  4. TICAGRELOR. [Suspect]
     Active Substance: TICAGRELOR
     Dosage: 90 MG BID
     Route: 048
  5. CANDESARTAN CILEXETIL. [Suspect]
     Active Substance: CANDESARTAN CILEXETIL
     Indication: PRODUCT USED FOR UNKNOWN INDICATION
     Dosage: 16 MG UNK / 16 MG DAILY
     Route: 048
  6. ATORVASTATIN [Concomitant]
     Active Substance: ATORVASTATIN
     Dosage: 40 DAILY / 60 DAILY
     Route: 065
  7. AMLODIPINE [Concomitant]
     Active Substance: AMLODIPINE BESYLATE
     Dosage: 5 DAILY
     Route: 065
  8. PANTOPRAZOLE [Concomitant]
     Active Substance: PANTOPRAZOLE
     Dosage: 40 DAILY /  20 DAILY
     Route: 065
  9. EZETIMIBE. [Concomitant]
     Active Substance: EZETIMIBE
     Dosage: 10 DAILY
     Route: 065
  10. EMPAGLIFLOZIN [Concomitant]
     Active Substance: EMPAGLIFLOZIN
     Dosage: 10 MG DAILY
     Route: 065
  11. METOPROLOL. [Concomitant]
     Active Substance: METOPROLOL
     Dosage: 47.5 TWO TIMES DAILY / 47.5 THREE TIMES DAILY / 95 TWO TIMES DAILY
     Route: 065

REACTIONS (8)
  - Angina pectoris [Unknown]
  - Acute myocardial infarction [Unknown]
  - Chest pain [Unknown]
  - Acute coronary syndrome [Unknown]
  - Glucose tolerance impaired [Unknown]
  - Blood pressure increased [Unknown]
  - Dyspnoea exertional [Unknown]
  - Low density lipoprotein increased [Recovering/Resolving]
